FAERS Safety Report 7467353-1 (Version None)
Quarter: 2011Q2

REPORT INFORMATION
  Report Type: 
  Country: None (occurrence: None)
  Receive Date: 20110509
  Receipt Date: 20101209
  Transmission Date: 20111010
  Serious: No
  Sender: FDA-Public Use
  Company Number: US-ALEXION-A201001584

PATIENT
  Sex: Male
  Weight: 150.11 kg

DRUGS (16)
  1. SOLIRIS [Suspect]
     Dosage: 1500 UG, QW
     Route: 042
     Dates: start: 20101101, end: 20101201
  2. ALTACE [Concomitant]
     Dosage: 2.5 MG, QD
     Route: 048
  3. SOLIRIS [Suspect]
     Dosage: 1200 MG, SINGLE
     Route: 042
     Dates: start: 20101217, end: 20101217
  4. COUMADIN [Concomitant]
     Dosage: 2.5 MG, QW (SUNDAYS)
  5. SOLIRIS [Suspect]
     Indication: PAROXYSMAL NOCTURNAL HAEMOGLOBINURIA
     Dosage: 1500 UG, Q2W
     Route: 042
     Dates: start: 20100215
  6. SOLIRIS [Suspect]
     Dosage: 1500 UG, QW
     Route: 042
     Dates: start: 20101201
  7. ACTOS [Concomitant]
     Dosage: 30 MG, QD
     Route: 048
  8. FOLVITE                            /00024201/ [Concomitant]
     Dosage: 1 MG, QD
     Route: 048
  9. FEOSOL [Concomitant]
     Dosage: 45 MG, BID
     Route: 048
  10. LEXAPRO [Concomitant]
     Dosage: 10 MG, QD
     Route: 048
  11. COUMADIN [Concomitant]
     Indication: ANTICOAGULANT THERAPY
     Dosage: 5 MG, EVERY DAY EXCEPT SUNDAY
  12. METOPROLOL TARTRATE [Concomitant]
     Dosage: 25 MG, QD
     Route: 048
  13. EFFIENT [Concomitant]
     Dosage: 10 MG, QD
     Route: 048
  14. MAG-OX [Concomitant]
     Dosage: 400 UG, BID
     Route: 048
  15. SYMBICORT [Concomitant]
     Dosage: UNK
  16. CELEBREX [Concomitant]
     Dosage: 400 MG, QD
     Route: 048

REACTIONS (5)
  - WEIGHT DECREASED [None]
  - HAEMOLYSIS [None]
  - FATIGUE [None]
  - HAEMOGLOBIN DECREASED [None]
  - DYSPNOEA [None]
